FAERS Safety Report 18425548 (Version 1)
Quarter: 2020Q4

REPORT INFORMATION
  Report Type: Spontaneous
  Country: US (occurrence: US)
  Receive Date: 20201026
  Receipt Date: 20201026
  Transmission Date: 20210114
  Serious: Yes (Hospitalization)
  Sender: FDA-Public Use
  Company Number: None

PATIENT
  Sex: Male
  Weight: 16.8 kg

DRUGS (1)
  1. DEXAMETHASONE. [Suspect]
     Active Substance: DEXAMETHASONE

REACTIONS (1)
  - Appendicitis perforated [None]

NARRATIVE: CASE EVENT DATE: 20201017
